FAERS Safety Report 5420994-5 (Version None)
Quarter: 2007Q3

REPORT INFORMATION
  Report Type: 
  Country: None (occurrence: None)
  Receive Date: 20070821
  Receipt Date: 20061129
  Transmission Date: 20080115
  Serious: Yes (Other)
  Sender: FDA-Public Use
  Company Number: US-ASTRAZENECA-2006UW26769

PATIENT
  Sex: Female

DRUGS (1)
  1. CEFOTAN [Suspect]
     Dates: start: 20040101

REACTIONS (1)
  - HAEMOLYTIC ANAEMIA [None]
